FAERS Safety Report 7513149-1 (Version None)
Quarter: 2011Q2

REPORT INFORMATION
  Report Type: 
  Country: None (occurrence: None)
  Receive Date: 20110531
  Receipt Date: 20110523
  Transmission Date: 20111010
  Serious: Yes (Other)
  Sender: FDA-Public Use
  Company Number: JP-MERCK-1105USA03968

PATIENT
  Age: 86 Year
  Sex: Female
  Weight: 41 kg

DRUGS (18)
  1. LANIRAPID [Suspect]
     Indication: CARDIAC FAILURE
     Route: 048
  2. WARFARIN SODIUM [Suspect]
     Indication: ATRIAL FIBRILLATION
     Route: 048
  3. ROCEPHIN [Concomitant]
     Route: 065
  4. UNASYN [Concomitant]
     Route: 065
  5. FLANOS [Concomitant]
     Route: 065
  6. RISPERDAL [Concomitant]
     Route: 048
  7. SODIUM CHLORIDE [Concomitant]
     Route: 065
  8. KINEDAK [Suspect]
     Indication: DIABETIC NEUROPATHY
     Route: 048
  9. SOLDEM 3A [Concomitant]
     Route: 065
  10. ZANTAC [Concomitant]
     Route: 065
  11. RADICUT [Concomitant]
     Route: 065
  12. PEPCID RPD [Suspect]
     Indication: PROPHYLAXIS AGAINST GASTROINTESTINAL ULCER
     Route: 048
     Dates: start: 20110217, end: 20110303
  13. LANIRAPID [Suspect]
     Indication: ATRIAL FIBRILLATION
     Route: 048
  14. ZOLPIDEM [Concomitant]
     Route: 065
  15. DEPAS [Concomitant]
     Route: 065
  16. BUFFERIN [Suspect]
     Route: 048
  17. SIGMART [Suspect]
     Route: 048
  18. VEEN F [Concomitant]
     Route: 065

REACTIONS (2)
  - RESTLESSNESS [None]
  - OVERDOSE [None]
